FAERS Safety Report 6721894-0 (Version None)
Quarter: 2010Q2

REPORT INFORMATION
  Report Type: 
  Country: None (occurrence: None)
  Receive Date: 20100512
  Receipt Date: 20100510
  Transmission Date: 20101027
  Serious: Yes (Death, Hospitalization)
  Sender: FDA-Public Use
  Company Number: PHHY2010US20774

PATIENT
  Sex: Female
  Weight: 58.6 kg

DRUGS (11)
  1. EXJADE [Suspect]
     Indication: MYELODYSPLASTIC SYNDROME
     Dosage: 3000 MG, QD
     Route: 048
     Dates: start: 20090106, end: 20091217
  2. EXJADE [Suspect]
     Indication: SERUM FERRITIN INCREASED
     Dosage: UNK MG, QD
     Route: 048
  3. HYDREA [Concomitant]
     Dosage: 500 MG, QD
     Route: 048
     Dates: start: 20100323
  4. LIFE EXTENSION CAPS [Concomitant]
     Dosage: UNK
     Route: 048
     Dates: start: 20100310
  5. FOLIC ACID [Concomitant]
     Dosage: 1 MG, QD
     Route: 048
     Dates: start: 20090728
  6. COQ10 [Concomitant]
     Dosage: 100 MG, QD
     Route: 048
     Dates: start: 20080604
  7. HERBALIFE PRODUCTS [Concomitant]
     Dosage: QD
     Route: 048
     Dates: start: 20070509
  8. NIACIN [Concomitant]
     Dosage: 500 MG, BID
     Route: 048
     Dates: start: 20070509
  9. VERAPAM [Concomitant]
     Dosage: 120 MG CP 24, QD
     Dates: start: 20070509
  10. CALCIUM [Concomitant]
     Dosage: 600 MG, BID
     Route: 048
     Dates: start: 20070509
  11. VITAMIN D [Concomitant]
     Dosage: 200 MG, BID
     Dates: start: 20070509

REACTIONS (6)
  - ABDOMINAL PAIN [None]
  - CHEST PAIN [None]
  - COLON CANCER [None]
  - ERYTHEMA [None]
  - METASTASES TO PERITONEUM [None]
  - PRURITUS [None]
